FAERS Safety Report 9471422 (Version 3)
Quarter: 2013Q4

REPORT INFORMATION
  Report Type: Spontaneous
  Country: US (occurrence: US)
  Receive Date: 20130822
  Receipt Date: 20131204
  Transmission Date: 20140711
  Serious: Yes (Life-Threatening, Other)
  Sender: FDA-Public Use
  Company Number: CHPA2013US013051

PATIENT
  Age: 60 Year
  Sex: Female

DRUGS (4)
  1. TRANSDERM SCOP [Suspect]
     Indication: VERTIGO
     Dosage: 1 DF, Q72H
     Route: 062
     Dates: start: 201307, end: 20130815
  2. TRANSDERM SCOP [Suspect]
     Dosage: 1 DF, Q72H
     Route: 062
     Dates: start: 2012, end: 2012
  3. MECLIZINE [Suspect]
     Indication: VERTIGO
     Dosage: 1 DF, ONCE/SINGLE
     Route: 048
     Dates: start: 201308, end: 201308
  4. ZYRTEC [Concomitant]
     Indication: SEASONAL ALLERGY
     Dosage: UNK, UNK
     Route: 048

REACTIONS (32)
  - Feeling abnormal [Recovered/Resolved]
  - Withdrawal syndrome [Recovered/Resolved]
  - Hallucination [Recovered/Resolved]
  - Dysphemia [Recovered/Resolved]
  - Nervous system disorder [Recovered/Resolved]
  - Motor dysfunction [Recovered/Resolved]
  - Memory impairment [Recovered/Resolved]
  - Cognitive disorder [Recovered/Resolved]
  - Impaired reasoning [Recovered/Resolved]
  - Urine odour abnormal [Recovered/Resolved]
  - Urine output increased [Recovered/Resolved]
  - Diarrhoea [Recovered/Resolved]
  - Activities of daily living impaired [Recovered/Resolved]
  - Pruritus [Recovered/Resolved]
  - Rash papular [Recovered/Resolved]
  - Faeces discoloured [Recovered/Resolved]
  - Vulvovaginal dryness [Recovered/Resolved]
  - Malaise [Recovered/Resolved]
  - Initial insomnia [Recovered/Resolved]
  - Erythema [Recovered/Resolved]
  - Vertigo [Recovered/Resolved]
  - Rash [Recovered/Resolved]
  - Vomiting [Recovered/Resolved]
  - Nausea [Recovered/Resolved]
  - Vision blurred [Recovered/Resolved]
  - Dizziness [Recovered/Resolved]
  - Dry mouth [Recovered/Resolved]
  - Headache [Recovered/Resolved]
  - Overdose [Unknown]
  - Off label use [Unknown]
  - Therapeutic response unexpected [Unknown]
  - Drug ineffective [Unknown]
